FAERS Safety Report 10014720 (Version 2)
Quarter: 2014Q2

REPORT INFORMATION
  Report Type: Spontaneous
  Country: FI (occurrence: FI)
  Receive Date: 20140317
  Receipt Date: 20140523
  Transmission Date: 20141212
  Serious: Yes (Other)
  Sender: FDA-Public Use
  Company Number: FI-ASTRAZENECA-2014SE16861

PATIENT
  Sex: Female

DRUGS (3)
  1. XYLOCAINE [Suspect]
     Route: 065
  2. CITANEST [Suspect]
  3. THYROXIN [Concomitant]

REACTIONS (2)
  - Cardiac discomfort [Unknown]
  - Wrong drug administered [Unknown]
